FAERS Safety Report 19439977 (Version 1)
Quarter: 2021Q2

REPORT INFORMATION
  Report Type: Spontaneous
  Country: DE (occurrence: DE)
  Receive Date: 20210620
  Receipt Date: 20210620
  Transmission Date: 20210717
  Serious: Yes (Other)
  Sender: FDA-Public Use
  Company Number: DE-ASTRAZENECA-2021A529064

PATIENT
  Sex: Male

DRUGS (1)
  1. PULMICORT TURBUHALER [Suspect]
     Active Substance: BUDESONIDE
     Route: 055

REACTIONS (5)
  - Cough [Recovering/Resolving]
  - Circumstance or information capable of leading to medication error [Recovered/Resolved]
  - Extrasystoles [Recovering/Resolving]
  - Cardiac disorder [Unknown]
  - Bronchostenosis [Recovering/Resolving]
